APPROVED DRUG PRODUCT: COPEGUS
Active Ingredient: RIBAVIRIN
Strength: 400MG **Federal Register determination that product was not discontinued or withdrawn for safety or effectiveness reasons**
Dosage Form/Route: TABLET;ORAL
Application: N021511 | Product #002
Applicant: HOFFMANN LA ROCHE INC
Approved: Jun 21, 2005 | RLD: Yes | RS: No | Type: DISCN